FAERS Safety Report 12229647 (Version 3)
Quarter: 2016Q2

REPORT INFORMATION
  Report Type: Spontaneous
  Country: US (occurrence: US)
  Receive Date: 20160401
  Receipt Date: 20160421
  Transmission Date: 20160815
  Serious: Yes (Hospitalization, Other)
  Sender: FDA-Public Use
  Company Number: US-JNJFOC-20160316875

PATIENT
  Age: 55 Year
  Sex: Male
  Weight: 85.5 kg

DRUGS (14)
  1. XARELTO [Suspect]
     Active Substance: RIVAROXABAN
     Indication: ATRIAL FIBRILLATION
     Route: 048
     Dates: start: 2011, end: 20160304
  2. TADALAFIL [Concomitant]
     Active Substance: TADALAFIL
     Route: 065
     Dates: start: 20150105
  3. XARELTO [Suspect]
     Active Substance: RIVAROXABAN
     Indication: CEREBROVASCULAR ACCIDENT PROPHYLAXIS
     Route: 048
     Dates: start: 2011, end: 20160304
  4. POTASSIUM CHLORIDE. [Concomitant]
     Active Substance: POTASSIUM CHLORIDE
     Route: 065
     Dates: start: 20150423
  5. DOFETILIDE. [Concomitant]
     Active Substance: DOFETILIDE
     Route: 065
     Dates: start: 20130408
  6. METHADONE [Concomitant]
     Active Substance: METHADONE HYDROCHLORIDE
     Route: 065
     Dates: start: 2014
  7. GABAPENTIN. [Concomitant]
     Active Substance: GABAPENTIN
     Route: 065
     Dates: start: 2014
  8. OXYCODONE [Concomitant]
     Active Substance: OXYCODONE
     Route: 065
     Dates: start: 2013
  9. FUROSEMIDE. [Concomitant]
     Active Substance: FUROSEMIDE
     Route: 065
     Dates: start: 20140827
  10. MAGNESIUM OXIDE. [Concomitant]
     Active Substance: MAGNESIUM OXIDE
     Route: 065
     Dates: start: 20150929
  11. DIGOXIN. [Concomitant]
     Active Substance: DIGOXIN
     Route: 065
     Dates: start: 20131231
  12. BOSENTAN. [Concomitant]
     Active Substance: BOSENTAN
     Route: 065
     Dates: start: 2011
  13. EPOPROSTENOL. [Concomitant]
     Active Substance: EPOPROSTENOL
     Route: 065
     Dates: start: 20150609
  14. SPIRONOLACTONE. [Concomitant]
     Active Substance: SPIRONOLACTONE
     Route: 065
     Dates: start: 20150302

REACTIONS (4)
  - Portal hypertensive gastropathy [Unknown]
  - Gastric haemorrhage [Recovered/Resolved]
  - High density lipoprotein decreased [Unknown]
  - Low density lipoprotein increased [Unknown]

NARRATIVE: CASE EVENT DATE: 20160306
